FAERS Safety Report 5827083-6 (Version None)
Quarter: 2008Q3

REPORT INFORMATION
  Report Type: 
  Country: None (occurrence: None)
  Receive Date: 20080730
  Receipt Date: 20080724
  Transmission Date: 20090109
  Serious: Yes (Hospitalization)
  Sender: FDA-Public Use
  Company Number: B0530722A

PATIENT
  Sex: Male

DRUGS (7)
  1. ADARTREL [Suspect]
     Indication: RESTLESS LEGS SYNDROME
     Route: 065
     Dates: start: 20080101
  2. REBIF [Concomitant]
     Indication: MULTIPLE SCLEROSIS
     Route: 065
  3. LYRICA [Concomitant]
     Route: 065
  4. TAHOR [Concomitant]
     Route: 065
  5. EFFEXOR [Concomitant]
     Indication: DEPRESSION
     Route: 065
  6. OLMIFON [Concomitant]
     Indication: DRUG USE FOR UNKNOWN INDICATION
     Route: 065
  7. MANTADIX [Concomitant]
     Indication: DRUG USE FOR UNKNOWN INDICATION
     Route: 065

REACTIONS (4)
  - CONVULSION [None]
  - FALL [None]
  - HYPOGLYCAEMIA [None]
  - UPPER LIMB FRACTURE [None]
